FAERS Safety Report 6676919-8 (Version None)
Quarter: 2010Q2

REPORT INFORMATION
  Report Type: 
  Country: None (occurrence: None)
  Receive Date: 20100412
  Receipt Date: 20100401
  Transmission Date: 20101027
  Serious: No
  Sender: FDA-Public Use
  Company Number: FR-ASTRAZENECA-2009SE19272

PATIENT
  Age: 50 Year
  Sex: Female
  Weight: 46 kg

DRUGS (3)
  1. DIPRIVAN [Suspect]
     Indication: GENERAL ANAESTHESIA
     Dosage: ONCE/SINGLE ADMINISTRATION
     Route: 042
     Dates: start: 19990101, end: 19990101
  2. FENTANYL-100 [Suspect]
     Indication: GENERAL ANAESTHESIA
     Dosage: ONCE/SINGLE ADMINISTRATION
     Route: 042
     Dates: start: 19990101, end: 19990101
  3. ISOFLURANE [Suspect]
     Indication: GENERAL ANAESTHESIA
     Dosage: ONCE/SINGLE ADMINISTRATION
     Route: 065
     Dates: start: 19990101, end: 19990101

REACTIONS (6)
  - DIZZINESS POSTURAL [None]
  - EYELID PTOSIS [None]
  - HEADACHE [None]
  - LACRIMATION INCREASED [None]
  - NECK PAIN [None]
  - PHOTOPHOBIA [None]
